FAERS Safety Report 7820764-4 (Version None)
Quarter: 2011Q4

REPORT INFORMATION
  Report Type: 
  Country: None (occurrence: None)
  Receive Date: 20111018
  Receipt Date: 20111004
  Transmission Date: 20120403
  Serious: Yes (Other)
  Sender: FDA-Public Use
  Company Number: US-BAYER-2011-013301

PATIENT
  Age: 23 Year
  Sex: Female
  Weight: 69.841 kg

DRUGS (4)
  1. BACTRIM DS [Concomitant]
     Dosage: UNK UNK, BID
     Route: 048
     Dates: start: 20080801
  2. YAZ [Suspect]
     Indication: PREMENSTRUAL SYNDROME
     Dosage: UNK
     Route: 048
     Dates: start: 20080501, end: 20090601
  3. MULTI-VITAMIN [Concomitant]
     Dosage: UNK UNK, QD
     Route: 048
  4. GARDASIL [Concomitant]
     Dosage: UNK
     Dates: start: 20080924

REACTIONS (4)
  - CHOLECYSTITIS ACUTE [None]
  - PAIN [None]
  - CHOLELITHIASIS [None]
  - INJURY [None]
